FAERS Safety Report 6004198-3 (Version None)
Quarter: 2008Q4

REPORT INFORMATION
  Report Type: 
  Country: None (occurrence: None)
  Receive Date: 20081215
  Receipt Date: 20081215
  Transmission Date: 20090506
  Serious: Yes (Other)
  Sender: FDA-Public Use
  Company Number: None

PATIENT
  Age: 61 Year
  Sex: Male
  Weight: 81.1939 kg

DRUGS (2)
  1. AMBIEN [Suspect]
     Indication: SLEEP DISORDER
     Dosage: 10 MG -AMBIEN- DAILY OR LESS PO
     Route: 048
  2. DIPHENHYDRAMINE HCL [Suspect]
     Indication: NASOPHARYNGITIS
     Dosage: 50 MG OCCSIONAL AS NEEDE PO
     Route: 048

REACTIONS (1)
  - SOMNOLENCE [None]
